FAERS Safety Report 19944495 (Version 1)
Quarter: 2021Q4

REPORT INFORMATION
  Report Type: 
  Country: US (occurrence: US)
  Receive Date: 20211011
  Receipt Date: 20211011
  Transmission Date: 20220303
  Serious: No
  Sender: FDA-Public Use
  Company Number: US-C B FLEET CO INC-202009-US-003558

PATIENT
  Sex: Female

DRUGS (1)
  1. MONISTAT 3 COMBINATION PACK 3 OVULE INSERTS [Suspect]
     Active Substance: MICONAZOLE NITRATE
     Indication: Fungal infection
     Dosage: USED VAGINALLY FOR TWO NIGHTS
     Route: 067
     Dates: start: 20200927

REACTIONS (2)
  - Vulvovaginal discomfort [Recovered/Resolved]
  - Dysuria [Recovering/Resolving]
